FAERS Safety Report 9392222 (Version 3)
Quarter: 2013Q3

REPORT INFORMATION
  Report Type: Spontaneous
  Country: US (occurrence: US)
  Receive Date: 20130710
  Receipt Date: 20130809
  Transmission Date: 20140515
  Serious: No
  Sender: FDA-Public Use
  Company Number: US-009507513-1307USA003133

PATIENT
  Sex: Female

DRUGS (3)
  1. PEGINTRON [Suspect]
     Indication: HEPATITIS C
     Dosage: REDIPEN
     Dates: start: 20130702
  2. REBETOL [Suspect]
     Indication: HEPATITIS C
     Dosage: 6 PILLS DAILY
     Route: 048
     Dates: start: 20130702
  3. REBETOL [Suspect]
     Dosage: 3 PILLS DAILY
     Route: 048

REACTIONS (6)
  - Flushing [Unknown]
  - Chills [Unknown]
  - Asthenia [Unknown]
  - Fatigue [Unknown]
  - Anaemia [Unknown]
  - Fatigue [Unknown]
